FAERS Safety Report 6692193-0 (Version None)
Quarter: 2010Q2

REPORT INFORMATION
  Report Type: 
  Country: None (occurrence: None)
  Receive Date: 20100422
  Receipt Date: 20091006
  Transmission Date: 20101027
  Serious: Yes (Other)
  Sender: FDA-Public Use
  Company Number: US-BAYER-200929397NA

PATIENT
  Age: 79 Year
  Sex: Female
  Weight: 67 kg

DRUGS (23)
  1. MAGNEVIST [Suspect]
     Indication: NUCLEAR MAGNETIC RESONANCE IMAGING
     Dates: start: 20010403, end: 20010403
  2. OMNISCAN [Suspect]
     Indication: NUCLEAR MAGNETIC RESONANCE IMAGING
  3. OPTIMARK [Suspect]
     Indication: NUCLEAR MAGNETIC RESONANCE IMAGING
  4. PROHANCE [Suspect]
     Indication: NUCLEAR MAGNETIC RESONANCE IMAGING
  5. MULTIHANCE [Suspect]
     Indication: NUCLEAR MAGNETIC RESONANCE IMAGING
  6. MINOXIDIL [Concomitant]
  7. SENSIPAR [Concomitant]
  8. NEPHROCAPS [Concomitant]
  9. DIOVAN [Concomitant]
  10. ALDACTONE [Concomitant]
  11. RENAGEL [Concomitant]
  12. COZAAR [Concomitant]
  13. ZEMPLAR [Concomitant]
  14. TOPROL-XL [Concomitant]
  15. CATAPRES [Concomitant]
  16. NORVASC [Concomitant]
  17. TENORMIN [Concomitant]
  18. ISOSORBIDE DINITRATE [Concomitant]
  19. VASOTEC [Concomitant]
  20. HECTOROL [Concomitant]
  21. ISOVUE-128 [Concomitant]
     Indication: ANGIOGRAM
     Dates: start: 20071018, end: 20071018
  22. ULTRAVIST 300 [Concomitant]
     Indication: COMPUTERISED TOMOGRAM ABDOMEN
     Dosage: TOTAL DAILY DOSE: 100 ML
     Route: 042
     Dates: start: 20071030, end: 20071030
  23. STEROIDS [Concomitant]
     Indication: PREMEDICATION
     Dates: start: 20071001, end: 20071001

REACTIONS (3)
  - FIBROSIS [None]
  - NEPHROGENIC SYSTEMIC FIBROSIS [None]
  - PAIN [None]
